FAERS Safety Report 25914074 (Version 2)
Quarter: 2025Q4

REPORT INFORMATION
  Report Type: Spontaneous
  Country: CA (occurrence: CA)
  Receive Date: 20251013
  Receipt Date: 20251023
  Transmission Date: 20260118
  Serious: Yes (Hospitalization, Other)
  Sender: PFIZER
  Company Number: CA-PFIZER INC-202500176572

PATIENT
  Age: 84 Year
  Sex: Female

DRUGS (1)
  1. VYNDAMAX [Suspect]
     Active Substance: TAFAMIDIS
     Indication: Cardiac amyloidosis
     Dosage: 61 MG, 1X/DAY
     Route: 048
     Dates: start: 2023

REACTIONS (19)
  - Lower gastrointestinal haemorrhage [Unknown]
  - Hypotension [Unknown]
  - Tricuspid valve incompetence [Unknown]
  - Hyperkalaemia [Unknown]
  - Dyspnoea exertional [Unknown]
  - Decreased appetite [Unknown]
  - Weight decreased [Unknown]
  - Systolic dysfunction [Unknown]
  - Right ventricular systolic pressure increased [Unknown]
  - Dilatation atrial [Unknown]
  - Hypomagnesaemia [Unknown]
  - Hyperchloraemia [Unknown]
  - Lymphopenia [Unknown]
  - Microcytosis [Unknown]
  - Mean cell volume increased [Unknown]
  - Red cell distribution width increased [Unknown]
  - N-terminal prohormone brain natriuretic peptide increased [Unknown]
  - Blood creatinine increased [Unknown]
  - Glomerular filtration rate decreased [Unknown]

NARRATIVE: CASE EVENT DATE: 20241107
